FAERS Safety Report 20179161 (Version 1)
Quarter: 2021Q4

REPORT INFORMATION
  Report Type: Report from Study
  Country: US (occurrence: US)
  Receive Date: 20211214
  Receipt Date: 20211214
  Transmission Date: 20220303
  Serious: Yes (Hospitalization)
  Sender: FDA-Public Use
  Company Number: US-ABBVIE-21K-163-4192721-00

PATIENT
  Sex: Female

DRUGS (2)
  1. DUOPA [Suspect]
     Active Substance: CARBIDOPA\LEVODOPA
     Indication: Product used for unknown indication
     Route: 050
  2. DUOPA [Suspect]
     Active Substance: CARBIDOPA\LEVODOPA

REACTIONS (15)
  - Fall [Unknown]
  - Femur fracture [Unknown]
  - Memory impairment [Unknown]
  - Impaired healing [Unknown]
  - Stoma site haemorrhage [Unknown]
  - Stoma site hypergranulation [Unknown]
  - Device breakage [Unknown]
  - Cognitive disorder [Unknown]
  - Device connection issue [Unknown]
  - Stoma site pain [Unknown]
  - Restless legs syndrome [Not Recovered/Not Resolved]
  - Medical device site bruise [Unknown]
  - Stoma site reaction [Unknown]
  - Loss of personal independence in daily activities [Unknown]
  - Pain [Unknown]

NARRATIVE: CASE EVENT DATE: 20210101
